FAERS Safety Report 14333749 (Version 4)
Quarter: 2018Q1

REPORT INFORMATION
  Report Type: Report from Study
  Country: JP (occurrence: JP)
  Receive Date: 20171228
  Receipt Date: 20180201
  Transmission Date: 20180509
  Serious: Yes (Other)
  Sender: FDA-Public Use
  Company Number: JP-ALLERGAN-1773626US

PATIENT
  Age: 74 Year
  Sex: Female

DRUGS (2)
  1. BRIMONIDINE;TIMOLOL - BP [Suspect]
     Active Substance: BRIMONIDINE TARTRATE\TIMOLOL MALEATE
     Indication: PRODUCT USED FOR UNKNOWN INDICATION
     Dosage: 2 GTT, BID (MORNING AND EVENING; AT 09:00 +/- 1 HOUR AND 21:00 +/- 1 HOUR)
     Route: 047
     Dates: start: 20170328, end: 20171214
  2. HYALONSAN [Concomitant]
     Dosage: 5-6 GTTS, QD
     Route: 047

REACTIONS (1)
  - Breast cancer [Recovering/Resolving]

NARRATIVE: CASE EVENT DATE: 20171206
